FAERS Safety Report 15682957 (Version 1)
Quarter: 2018Q4

REPORT INFORMATION
  Report Type: Spontaneous
  Country: FR (occurrence: FR)
  Receive Date: 20181203
  Receipt Date: 20181203
  Transmission Date: 20190205
  Serious: Yes (Other)
  Sender: FDA-Public Use
  Company Number: FR-SUN PHARMACEUTICAL INDUSTRIES LTD-2018RR-192390

PATIENT
  Age: 15 Year
  Sex: Female
  Weight: 52 kg

DRUGS (2)
  1. HIDONAC 5 G/25 ML, SOLUTION INJECTABLE POUR PERFUSION [Suspect]
     Active Substance: ACETYLCYSTEINE
     Indication: TOXICITY TO VARIOUS AGENTS
     Dosage: 150 MILLIGRAM/KILOGRAM, DAILY
     Route: 042
     Dates: start: 20181011, end: 20181013
  2. PARACETAMOL [Suspect]
     Active Substance: ACETAMINOPHEN
     Indication: SUICIDE ATTEMPT
     Dosage: IN TOTAL
     Route: 048
     Dates: start: 20181011, end: 20181011

REACTIONS (1)
  - Anaphylactic reaction [Recovered/Resolved]

NARRATIVE: CASE EVENT DATE: 20181011
